FAERS Safety Report 6520971-7 (Version None)
Quarter: 2009Q4

REPORT INFORMATION
  Report Type: 
  Country: None (occurrence: None)
  Receive Date: 20091229
  Receipt Date: 20091221
  Transmission Date: 20100525
  Serious: Yes (Other)
  Sender: FDA-Public Use
  Company Number: US-PFIZER INC-2009305113

PATIENT
  Sex: Female
  Weight: 53 kg

DRUGS (1)
  1. CHANTIX [Suspect]
     Indication: SMOKING CESSATION THERAPY
     Dosage: UNK
     Route: 048
     Dates: start: 20090829, end: 20091027

REACTIONS (8)
  - CHEST DISCOMFORT [None]
  - CHOKING [None]
  - CLAUSTROPHOBIA [None]
  - DISTURBANCE IN ATTENTION [None]
  - DYSPNOEA [None]
  - HEART RATE INCREASED [None]
  - PANIC ATTACK [None]
  - WITHDRAWAL SYNDROME [None]
